FAERS Safety Report 24421165 (Version 2)
Quarter: 2025Q2

REPORT INFORMATION
  Report Type: Spontaneous
  Country: US (occurrence: US)
  Receive Date: 20241010
  Receipt Date: 20250513
  Transmission Date: 20250716
  Serious: Yes (Other)
  Sender: SANDOZ
  Company Number: US-SANDOZ-SDZ2024US084971

PATIENT
  Age: 40 Year
  Sex: Female
  Weight: 60 kg

DRUGS (2)
  1. ESTRADIOL [Suspect]
     Active Substance: ESTRADIOL
     Indication: Infertility female
     Dosage: Q48H, 0.1MG/DAY
     Route: 062
     Dates: start: 20240820, end: 20241002
  2. ESTRADIOL [Suspect]
     Active Substance: ESTRADIOL
     Indication: Infertility female
     Dosage: 01 MG, Q48H
     Route: 062
     Dates: start: 20240820, end: 20241002

REACTIONS (5)
  - Pain [Not Recovered/Not Resolved]
  - Urticaria [Not Recovered/Not Resolved]
  - Exposure during pregnancy [Unknown]
  - Product quality issue [Unknown]
  - Product adhesion issue [Unknown]

NARRATIVE: CASE EVENT DATE: 20241001
